FAERS Safety Report 7675200-8 (Version None)
Quarter: 2011Q3

REPORT INFORMATION
  Report Type: 
  Country: None (occurrence: None)
  Receive Date: 20110810
  Receipt Date: 20110810
  Transmission Date: 20111222
  Serious: Yes (Disabling)
  Sender: FDA-Public Use
  Company Number: None

PATIENT
  Age: 69 Year
  Sex: Male
  Weight: 71 kg

DRUGS (1)
  1. VARENICLINE [Suspect]

REACTIONS (3)
  - HOT FLUSH [None]
  - DYSPNOEA [None]
  - HYPERHIDROSIS [None]
